APPROVED DRUG PRODUCT: MOMETASONE FUROATE
Active Ingredient: MOMETASONE FUROATE
Strength: 0.1%
Dosage Form/Route: CREAM;TOPICAL
Application: A076679 | Product #001 | TE Code: AB
Applicant: SUN PHARMA CANADA INC
Approved: Dec 21, 2004 | RLD: No | RS: No | Type: RX